FAERS Safety Report 9775344 (Version 1)
Quarter: 2013Q4

REPORT INFORMATION
  Report Type: Spontaneous
  Country: US (occurrence: None)
  Receive Date: 20131219
  Receipt Date: 20131219
  Transmission Date: 20140711
  Serious: No
  Sender: FDA-Public Use
  Company Number: None

PATIENT
  Age: 13 Year
  Sex: Male
  Weight: 54.43 kg

DRUGS (1)
  1. METHYPHENIDATE HCL [Suspect]
     Indication: ATTENTION DEFICIT/HYPERACTIVITY DISORDER
     Dosage: ONE TAB DAILY, DAILY IN MORNING, WITH BREAKFAST
     Route: 048
     Dates: start: 20131202, end: 20131208

REACTIONS (4)
  - Visual acuity reduced [None]
  - Eye pain [None]
  - Nausea [None]
  - Moaning [None]
